FAERS Safety Report 8821443 (Version 2)
Quarter: 2012Q4

REPORT INFORMATION
  Report Type: 
  Country: MY (occurrence: MY)
  Receive Date: 20121002
  Receipt Date: 20121012
  Transmission Date: 20130627
  Serious: Yes (Death, Hospitalization)
  Sender: FDA-Public Use
  Company Number: MY-ROCHE-1139563

PATIENT
  Age: 59 Year
  Sex: Male

DRUGS (3)
  1. METALYSE [Suspect]
     Indication: PRODUCT USED FOR UNKNOWN INDICATION
     Route: 042
     Dates: start: 20120921, end: 20120921
  2. METALYSE [Suspect]
     Route: 042
  3. STREPTOKINASE [Concomitant]
     Route: 065
     Dates: start: 20120912

REACTIONS (2)
  - Death [Fatal]
  - Haemorrhage intracranial [Not Recovered/Not Resolved]
